FAERS Safety Report 9475036 (Version 1)
Quarter: 2013Q3

REPORT INFORMATION
  Report Type: Spontaneous
  Country: US (occurrence: US)
  Receive Date: 20130824
  Receipt Date: 20130824
  Transmission Date: 20140515
  Serious: Yes (Other)
  Sender: FDA-Public Use
  Company Number: US-ACCORD-019103

PATIENT
  Age: 61 Year
  Sex: Female

DRUGS (9)
  1. HYDROCHLOROTHIAZIDE [Suspect]
     Indication: HYPERTENSION
     Route: 048
  2. FD+C YELLOW NO. 6 [Suspect]
     Route: 048
  3. FD+C YELLOW NO. 10 [Suspect]
     Route: 048
  4. CETRIZINE [Suspect]
     Indication: PRODUCT USED FOR UNKNOWN INDICATION
  5. AMLODIPINE [Suspect]
     Indication: HYPERTENSION
     Route: 048
  6. FD+C BLUE NO. 2--ALUMINUM LAKE [Suspect]
     Route: 048
  7. FD+C BLUE NO. 1 [Suspect]
     Route: 048
  8. METOPROLOL [Suspect]
     Indication: HYPERTENSION
  9. FD+C RED NO. 28 [Suspect]
     Route: 048

REACTIONS (3)
  - Reaction to drug excipients [Unknown]
  - Angioedema [Unknown]
  - Pruritus generalised [Unknown]
